FAERS Safety Report 11223184 (Version 1)
Quarter: 2015Q2

REPORT INFORMATION
  Report Type: Report from Study
  Country: TR (occurrence: TR)
  Receive Date: 20150626
  Receipt Date: 20150626
  Transmission Date: 20150821
  Serious: Yes (Death, Hospitalization)
  Sender: FDA-Public Use
  Company Number: TR-MERCK-1506TUR013840

PATIENT
  Age: 71 Year
  Sex: Female

DRUGS (4)
  1. DAPTOMYCIN. [Concomitant]
     Active Substance: DAPTOMYCIN
     Indication: CLOSTRIDIAL INFECTION
     Dosage: 500 MG, QD
     Route: 042
     Dates: start: 201411, end: 201411
  2. COLISTIN [Concomitant]
     Active Substance: COLISTIN
     Indication: PNEUMONIA
     Dosage: 150 MG, QD
     Route: 042
     Dates: start: 201412, end: 201412
  3. CASPOFUNGIN ACETATE [Suspect]
     Active Substance: CASPOFUNGIN ACETATE
     Indication: SYSTEMIC CANDIDA
     Dosage: UNK
  4. IMIPENEM [Concomitant]
     Active Substance: IMIPENEM
     Indication: PNEUMONIA
     Dosage: 500 MG, QD
     Route: 042
     Dates: start: 20141128, end: 20141206

REACTIONS (1)
  - Candida sepsis [Fatal]

NARRATIVE: CASE EVENT DATE: 20141125
